FAERS Safety Report 12889356 (Version 1)
Quarter: 2016Q4

REPORT INFORMATION
  Report Type: Spontaneous
  Country: US (occurrence: US)
  Receive Date: 20161027
  Receipt Date: 20161027
  Transmission Date: 20170207
  Serious: Yes (Other)
  Sender: FDA-Public Use
  Company Number: US-BAYER-2016-206178

PATIENT
  Age: 39 Year
  Sex: Male
  Weight: 61.22 kg

DRUGS (2)
  1. MAGNEVIST [Suspect]
     Active Substance: GADOPENTETATE DIMEGLUMINE
     Indication: NUCLEAR MAGNETIC RESONANCE IMAGING SPINAL
     Dosage: 12 ML, ONCE
     Route: 042
     Dates: start: 20161025, end: 20161025
  2. ALBUTEROL. [Concomitant]
     Active Substance: ALBUTEROL
     Dosage: UNK UNK, PRN

REACTIONS (8)
  - Cold sweat [Recovered/Resolved]
  - Paraesthesia [Recovered/Resolved]
  - Dysgeusia [Recovered/Resolved]
  - Erythema [Recovered/Resolved]
  - Dyspnoea [Recovered/Resolved]
  - Pruritus [Recovered/Resolved]
  - Chest discomfort [Recovered/Resolved]
  - Feeling hot [Recovered/Resolved]

NARRATIVE: CASE EVENT DATE: 20161025
